FAERS Safety Report 16713928 (Version 1)
Quarter: 2019Q3

REPORT INFORMATION
  Report Type: Spontaneous
  Country: BE (occurrence: BE)
  Receive Date: 20190819
  Receipt Date: 20190819
  Transmission Date: 20191004
  Serious: Yes (Other)
  Sender: FDA-Public Use
  Company Number: BE-TEVA-2019-BE-1092148

PATIENT
  Sex: Female

DRUGS (1)
  1. CO-AMILORIDE TEVA 5/50 MG TABLETTEN [Suspect]
     Active Substance: AMILORIDE HYDROCHLORIDE\HYDROCHLOROTHIAZIDE
     Indication: MENIERE^S DISEASE
     Dosage: HALF TABLET PER DAY, FOR ABOUT 3-4 YEARS
     Route: 065

REACTIONS (3)
  - Skin discolouration [Unknown]
  - Reaction to excipient [Unknown]
  - Rash macular [Unknown]
